FAERS Safety Report 11247223 (Version 1)
Quarter: 2015Q3

REPORT INFORMATION
  Report Type: Spontaneous
  Country: FR (occurrence: FR)
  Receive Date: 20150708
  Receipt Date: 20150708
  Transmission Date: 20151125
  Serious: Yes (Other)
  Sender: FDA-Public Use
  Company Number: FR-JNJFOC-20150704496

PATIENT
  Age: 87 Year
  Sex: Female

DRUGS (5)
  1. PROFENID [Concomitant]
     Active Substance: KETOPROFEN
     Route: 048
     Dates: start: 20150505
  2. DOLIPRANE [Concomitant]
     Active Substance: ACETAMINOPHEN
     Route: 048
     Dates: start: 20150505
  3. FLECAINE [Concomitant]
     Active Substance: FLECAINIDE
     Route: 048
  4. XARELTO [Suspect]
     Active Substance: RIVAROXABAN
     Indication: THROMBOSIS PROPHYLAXIS
     Route: 048
     Dates: start: 20150505, end: 20150506
  5. LERCAN [Concomitant]
     Active Substance: LERCANIDIPINE
     Route: 048

REACTIONS (2)
  - Deep vein thrombosis [Recovered/Resolved]
  - Drug ineffective [Recovered/Resolved]

NARRATIVE: CASE EVENT DATE: 20150506
